FAERS Safety Report 7150052-3 (Version None)
Quarter: 2010Q4

REPORT INFORMATION
  Report Type: 
  Country: None (occurrence: None)
  Receive Date: 20101210
  Receipt Date: 20101203
  Transmission Date: 20110411
  Serious: No
  Sender: FDA-Public Use
  Company Number: US-PFIZER INC-2010164166

PATIENT
  Sex: Male
  Weight: 83.9 kg

DRUGS (7)
  1. LYRICA [Suspect]
     Indication: ABDOMINAL PAIN
     Dosage: 50 MG, 3X/DAY
     Route: 048
     Dates: start: 20100701
  2. ALLOPURINOL [Concomitant]
     Dosage: UNK, DAILY
  3. FINASTERIDE [Concomitant]
     Indication: BENIGN PROSTATIC HYPERPLASIA
     Dosage: UNK
  4. DOXAZOSIN [Concomitant]
     Indication: DYSURIA
     Dosage: 8 MG, UNK
  5. OMEPRAZOLE [Concomitant]
     Dosage: 20 MG, UNK
  6. COSOPT [Concomitant]
     Indication: GLAUCOMA
     Dosage: UNK
     Route: 047
  7. TYLENOL (CAPLET) [Concomitant]
     Indication: ARTHRITIS
     Dosage: UNK, DAILY

REACTIONS (2)
  - BALANCE DISORDER [None]
  - DIZZINESS [None]
